FAERS Safety Report 8546175-4 (Version None)
Quarter: 2012Q3

REPORT INFORMATION
  Report Type: 
  Country: None (occurrence: None)
  Receive Date: 20120727
  Receipt Date: 20120718
  Transmission Date: 20120928
  Serious: Yes (Hospitalization)
  Sender: FDA-Public Use
  Company Number: FR-ASTRAZENECA-2012SE51268

PATIENT
  Age: 17946 Day
  Sex: Female

DRUGS (11)
  1. ZINC GLUCONATE [Concomitant]
  2. IMODIUM [Suspect]
     Route: 048
  3. LEXOMIL ROCHE [Suspect]
     Route: 048
  4. SPASFON [Concomitant]
  5. XANAX [Suspect]
     Route: 048
  6. HUMIRA [Suspect]
     Route: 058
  7. HYDROCORTISONE [Suspect]
     Route: 048
  8. MAGNE-B6 [Concomitant]
  9. ACETAMINOPHEN [Concomitant]
  10. POTASSIUM CHLORIDE [Concomitant]
  11. ENTOCORT EC [Suspect]
     Route: 048

REACTIONS (1)
  - PULMONARY EMBOLISM [None]
